FAERS Safety Report 7585420-9 (Version None)
Quarter: 2011Q3

REPORT INFORMATION
  Report Type: 
  Country: None (occurrence: None)
  Receive Date: 20110701
  Receipt Date: 20110609
  Transmission Date: 20111222
  Serious: Yes (Death)
  Sender: FDA-Public Use
  Company Number: JP-BAYER-2011-048621

PATIENT
  Age: 66 Year
  Sex: Male

DRUGS (2)
  1. NEXAVAR [Suspect]
     Dosage: 200 MG, QID
     Route: 048
     Dates: start: 20110520
  2. NEXAVAR [Suspect]
     Indication: HEPATIC NEOPLASM MALIGNANT
     Dosage: 200 MG, QID
     Route: 048
     Dates: start: 20110514, end: 20110516

REACTIONS (6)
  - PRODUCTIVE COUGH [None]
  - AMMONIA INCREASED [None]
  - LUNG INFECTION PSEUDOMONAL [None]
  - CONSTIPATION [None]
  - SEPTIC SHOCK [None]
  - PYREXIA [None]
